FAERS Safety Report 16830281 (Version 7)
Quarter: 2021Q2

REPORT INFORMATION
  Report Type: Report from Study
  Country: US (occurrence: US)
  Receive Date: 20190920
  Receipt Date: 20210420
  Transmission Date: 20210716
  Serious: Yes (Hospitalization, Other)
  Sender: FDA-Public Use
  Company Number: US-SHIRE-US201927259

PATIENT
  Age: 29 Year
  Sex: Female
  Weight: 63 kg

DRUGS (11)
  1. FIRAZYR [Concomitant]
     Active Substance: ICATIBANT ACETATE
  2. LANADELUMAB [Suspect]
     Active Substance: LANADELUMAB
     Indication: IMMUNE SYSTEM DISORDER
     Dosage: 300 MILLIGRAM, Q2WEEKS
     Route: 058
     Dates: start: 20201024
  3. ZOLPIDEM [Concomitant]
     Active Substance: ZOLPIDEM TARTRATE
  4. HEPARIN [Concomitant]
     Active Substance: HEPARIN SODIUM
  5. CLONAZEPAM. [Concomitant]
     Active Substance: CLONAZEPAM
  6. LANADELUMAB [Suspect]
     Active Substance: LANADELUMAB
     Indication: HEREDITARY ANGIOEDEMA
     Dosage: 300 MILLIGRAM, 1X/2WKS
     Route: 058
     Dates: start: 20190314
  7. DIPHENHYDRAMINE. [Concomitant]
     Active Substance: DIPHENHYDRAMINE
  8. RUCONEST [Concomitant]
     Active Substance: HUMAN C1-ESTERASE INHIBITOR
  9. ADDERALL [Concomitant]
     Active Substance: AMPHETAMINE ASPARTATE\AMPHETAMINE SULFATE\DEXTROAMPHETAMINE SACCHARATE\DEXTROAMPHETAMINE SULFATE
  10. STERILE WATER [Concomitant]
     Active Substance: WATER
  11. EPINEPHRINE. [Concomitant]
     Active Substance: EPINEPHRINE

REACTIONS (10)
  - Hereditary angioedema [Not Recovered/Not Resolved]
  - Product availability issue [Unknown]
  - Product dose omission issue [Recovered/Resolved]
  - Peripheral swelling [Unknown]
  - Vomiting [Unknown]
  - Dehydration [Unknown]
  - Inappropriate schedule of product administration [Recovering/Resolving]
  - Condition aggravated [Unknown]
  - Eye swelling [Unknown]
  - Syncope [Unknown]

NARRATIVE: CASE EVENT DATE: 20190809
